FAERS Safety Report 6180236-2 (Version None)
Quarter: 2009Q2

REPORT INFORMATION
  Report Type: 
  Country: None (occurrence: None)
  Receive Date: 20090504
  Receipt Date: 20090422
  Transmission Date: 20091009
  Serious: Yes (Hospitalization)
  Sender: FDA-Public Use
  Company Number: 2009-01581

PATIENT
  Age: 60 Year
  Sex: Female
  Weight: 47 kg

DRUGS (3)
  1. VELCADE [Suspect]
     Indication: MULTIPLE MYELOMA
  2. DOXIL [Suspect]
     Indication: MULTIPLE MYELOMA
     Dosage: 20 MG/M2
  3. DECADRON [Suspect]
     Indication: MULTIPLE MYELOMA

REACTIONS (17)
  - CHILLS [None]
  - CONSTIPATION [None]
  - DIARRHOEA [None]
  - EJECTION FRACTION DECREASED [None]
  - FEELING COLD [None]
  - FLUID OVERLOAD [None]
  - HAEMATOCRIT DECREASED [None]
  - HYPOTENSION [None]
  - INFECTION [None]
  - LEUKOPENIA [None]
  - MALAISE [None]
  - NAUSEA [None]
  - OXYGEN SATURATION DECREASED [None]
  - SERRATIA SEPSIS [None]
  - THROMBOCYTOPENIA [None]
  - VENTRICULAR DYSKINESIA [None]
  - VOMITING [None]
